FAERS Safety Report 6251209-6 (Version None)
Quarter: 2009Q2

REPORT INFORMATION
  Report Type: 
  Country: None (occurrence: None)
  Receive Date: 20090630
  Receipt Date: 20090619
  Transmission Date: 20091009
  Serious: Yes (Other)
  Sender: FDA-Public Use
  Company Number: FR-GENENTECH-285667

PATIENT
  Age: 75 Year
  Sex: Female

DRUGS (1)
  1. ACTIVASE [Suspect]
     Indication: ISCHAEMIC STROKE
     Dosage: 0.9 MG/KG, UNK
     Route: 042

REACTIONS (3)
  - HAEMODYNAMIC INSTABILITY [None]
  - HAEMORRHAGE [None]
  - HYPOVOLAEMIA [None]
